FAERS Safety Report 7556774-4 (Version None)
Quarter: 2011Q2

REPORT INFORMATION
  Report Type: 
  Country: None (occurrence: None)
  Receive Date: 20110620
  Receipt Date: 20110610
  Transmission Date: 20111010
  Serious: Yes (Hospitalization, Other)
  Sender: FDA-Public Use
  Company Number: CA-ABBOTT-11P-028-0731093-00

PATIENT
  Sex: Female
  Weight: 83.082 kg

DRUGS (10)
  1. DICETEL [Concomitant]
     Indication: CROHN'S DISEASE
     Route: 048
     Dates: start: 20090101
  2. ZOMIG [Concomitant]
     Indication: MIGRAINE PROPHYLAXIS
     Route: 048
     Dates: start: 20030101
  3. IMOVANE [Concomitant]
     Indication: SLEEP DISORDER THERAPY
     Route: 048
     Dates: start: 20070101
  4. HUMIRA [Suspect]
     Indication: RHEUMATOID ARTHRITIS
     Route: 058
     Dates: start: 20110607
  5. DOMPERIDONE [Concomitant]
     Indication: CROHN'S DISEASE
     Route: 048
     Dates: start: 20090101
  6. CLONAZEPAM [Concomitant]
     Indication: ANXIETY
     Dosage: DAILY AS NEEDED
     Route: 048
     Dates: start: 20060101
  7. NEXIUM [Concomitant]
     Indication: GASTROOESOPHAGEAL REFLUX DISEASE
     Route: 048
     Dates: start: 20090101
  8. LIBRAX [Concomitant]
     Indication: CROHN'S DISEASE
     Route: 048
     Dates: start: 20100101
  9. OXYCODONE HCL AND ACETAMINOPHEN [Concomitant]
     Indication: PAIN
     Dosage: 5MG/325MG EVERY 4-6 HOURS
     Route: 048
     Dates: start: 20100101
  10. ATIVAN [Concomitant]
     Indication: ANXIETY
     Route: 048

REACTIONS (14)
  - NAUSEA [None]
  - DIZZINESS [None]
  - CHEST PAIN [None]
  - DYSPHONIA [None]
  - FATIGUE [None]
  - MEMORY IMPAIRMENT [None]
  - CONFUSIONAL STATE [None]
  - INJECTION SITE HAEMATOMA [None]
  - MIGRAINE [None]
  - INJECTION SITE PRURITUS [None]
  - THROAT TIGHTNESS [None]
  - HYPERSENSITIVITY [None]
  - DYSPHAGIA [None]
  - DYSPNOEA [None]
